FAERS Safety Report 15288018 (Version 3)
Quarter: 2019Q1

REPORT INFORMATION
  Report Type: Spontaneous
  Country: US (occurrence: US)
  Receive Date: 20180817
  Receipt Date: 20190111
  Transmission Date: 20190417
  Serious: No
  Sender: FDA-Public Use
  Company Number: US-PFIZER INC-2018332088

PATIENT
  Age: 67 Year
  Sex: Female
  Weight: 59 kg

DRUGS (12)
  1. LOSARTAN. [Concomitant]
     Active Substance: LOSARTAN
     Indication: HYPERTENSION
     Dosage: 100 MG, DAILY
     Route: 048
     Dates: start: 2000
  2. FLOMAX [Concomitant]
     Active Substance: TAMSULOSIN HYDROCHLORIDE
     Indication: DYSURIA
     Dosage: 0.4 MG, 1X/DAY (4MG TABLET BY MOUTH AT NIGHT)
     Route: 048
     Dates: start: 201806
  3. SINGULAIR [Concomitant]
     Active Substance: MONTELUKAST SODIUM
     Indication: HYPERSENSITIVITY
     Dosage: 10 MG, 1X/DAY(10 MG TABLET BY MOUTH AT NIGHT)
     Route: 048
     Dates: start: 201803
  4. PRAVASTATIN. [Concomitant]
     Active Substance: PRAVASTATIN
     Indication: BLOOD CHOLESTEROL
     Dosage: 20 MG, DAILY
     Route: 048
     Dates: start: 2008
  5. PANTOPRAZOLE [Concomitant]
     Active Substance: PANTOPRAZOLE
     Indication: GASTROOESOPHAGEAL REFLUX DISEASE
     Dosage: 40 MG, 2X/DAY
     Route: 048
  6. NORVASC [Concomitant]
     Active Substance: AMLODIPINE BESYLATE
     Indication: HYPERTENSION
     Dosage: 10 MG, DAILY
     Dates: start: 2000
  7. XELJANZ XR [Suspect]
     Active Substance: TOFACITINIB CITRATE
     Indication: RHEUMATOID ARTHRITIS
     Dosage: 11 MG, DAILY
     Route: 048
     Dates: start: 201805, end: 2018
  8. METHOTREXATE. [Concomitant]
     Active Substance: METHOTREXATE
     Indication: PSORIATIC ARTHROPATHY
     Dosage: 15 MG, WEEKLY(2.5MG TABLET, TAKES 6 TABLETS ONCE A WEEK)
     Dates: start: 2016
  9. AZELASTINE. [Concomitant]
     Active Substance: AZELASTINE HYDROCHLORIDE
     Indication: RHINITIS ALLERGIC
     Dosage: 548 UG, 2X/DAY(2 SPRAYS PER NOSTRIL TWICE DAILY)
     Route: 045
     Dates: start: 2016
  10. VENTOLIN [Concomitant]
     Active Substance: ALBUTEROL SULFATE
     Indication: SLEEP APNOEA SYNDROME
     Dosage: 180 UG, 1X/DAY(90MCG/ACTUATION 2 PUFFS IN THE MORNING)
     Dates: start: 201803
  11. GABAPENTIN. [Concomitant]
     Active Substance: GABAPENTIN
     Indication: PAIN
     Dosage: 600 MG, 3X/DAY(2 CAPSULES BY MOUTH THREE TIMES A DAY)
     Route: 048
     Dates: start: 2015
  12. STIOLTO RESPIMAT [Concomitant]
     Active Substance: OLODATEROL HYDROCHLORIDE\TIOTROPIUM BROMIDE MONOHYDRATE
     Indication: SLEEP APNOEA SYNDROME
     Dosage: 5 UG, 2X/DAY(2.5 MCG/ACTUATION 2 PUFFS TWICE AT NIGHT)
     Dates: start: 201803

REACTIONS (5)
  - Malaise [Unknown]
  - Peripheral swelling [Unknown]
  - Infection [Unknown]
  - Drug ineffective [Unknown]
  - Bronchitis [Recovered/Resolved]

NARRATIVE: CASE EVENT DATE: 2018
